FAERS Safety Report 15793841 (Version 1)
Quarter: 2019Q1

REPORT INFORMATION
  Report Type: Spontaneous
  Country: US (occurrence: US)
  Receive Date: 20190105
  Receipt Date: 20190105
  Transmission Date: 20190417
  Serious: Yes (Life-Threatening, Other)
  Sender: FDA-Public Use
  Company Number: None

PATIENT
  Age: 6 Year
  Sex: Male
  Weight: 22.5 kg

DRUGS (9)
  1. NEUROTIN [Concomitant]
     Active Substance: GABAPENTIN
  2. FELBAMATE. [Concomitant]
     Active Substance: FELBAMATE
  3. BACLOFEN. [Concomitant]
     Active Substance: BACLOFEN
  4. OSCAR [Concomitant]
  5. CLOBAZAM. [Suspect]
     Active Substance: CLOBAZAM
     Indication: LENNOX-GASTAUT SYNDROME
     Dosage: ?          QUANTITY:1.5 ML;?
     Route: 048
     Dates: start: 20181221, end: 20190104
  6. NITROFUROTONIN [Concomitant]
  7. SINGULAIR [Concomitant]
     Active Substance: MONTELUKAST SODIUM
  8. MVI [Concomitant]
     Active Substance: VITAMINS
  9. LEVOTHYROXINE. [Concomitant]
     Active Substance: LEVOTHYROXINE

REACTIONS (2)
  - Product substitution issue [None]
  - Seizure [None]

NARRATIVE: CASE EVENT DATE: 20181221
